FAERS Safety Report 15838358 (Version 1)
Quarter: 2019Q1

REPORT INFORMATION
  Report Type: Spontaneous
  Country: US (occurrence: US)
  Receive Date: 20190117
  Receipt Date: 20190117
  Transmission Date: 20190417
  Serious: No
  Sender: FDA-Public Use
  Company Number: US-SA-2019SA013637

PATIENT

DRUGS (2)
  1. AMBIEN [Suspect]
     Active Substance: ZOLPIDEM TARTRATE
     Dosage: UNK UNK, UNK
  2. RAPAMUNE [Concomitant]
     Active Substance: SIROLIMUS
     Dosage: 1 DF, QD
     Route: 048

REACTIONS (1)
  - Hypersensitivity [Unknown]
